FAERS Safety Report 5691903-9 (Version None)
Quarter: 2008Q1

REPORT INFORMATION
  Report Type: 
  Country: None (occurrence: None)
  Receive Date: 20080331
  Receipt Date: 20070404
  Transmission Date: 20080703
  Serious: Yes (Hospitalization)
  Sender: FDA-Public Use
  Company Number: 75643

PATIENT
  Age: 44 Year
  Sex: Female

DRUGS (2)
  1. NAPROXEN [Suspect]
     Indication: GASTROINTESTINAL HAEMORRHAGE
     Dosage: 500MG/ 2/ 1DAYS/ ORAL
     Route: 048
     Dates: end: 20070313
  2. SULPHADIAZINE/ ARTHRITIS/ 1G/ 2/ 1DAYS [Concomitant]

REACTIONS (2)
  - ANAEMIA [None]
  - GASTROINTESTINAL HAEMORRHAGE [None]
